FAERS Safety Report 13029986 (Version 1)
Quarter: 2016Q4

REPORT INFORMATION
  Report Type: Spontaneous
  Country: US (occurrence: US)
  Receive Date: 20161214
  Receipt Date: 20161214
  Transmission Date: 20170207
  Serious: Yes (Other)
  Sender: FDA-Public Use
  Company Number: None

PATIENT
  Age: 5 Year
  Sex: Female
  Weight: 19.35 kg

DRUGS (1)
  1. AMOCICILLIAN 400MG 100ML [Suspect]
     Active Substance: AMOXICILLIN
     Indication: EAR INFECTION
     Dosage: 2 TEASPOON(S) TWICE A DAY ORAL
     Route: 048
     Dates: start: 20161204, end: 20161211

REACTIONS (3)
  - Peripheral swelling [None]
  - Joint swelling [None]
  - Erythema multiforme [None]

NARRATIVE: CASE EVENT DATE: 20161212
